FAERS Safety Report 4513414-6 (Version None)
Quarter: 2004Q4

REPORT INFORMATION
  Report Type: 
  Country: None (occurrence: None)
  Receive Date: 20041130
  Receipt Date: 20040922
  Transmission Date: 20050328
  Serious: No
  Sender: FDA-Public Use
  Company Number: US-BRISTOL-MYERS SQUIBB COMPANY-12710232

PATIENT
  Age: 58 Year
  Sex: Female

DRUGS (1)
  1. ERBITUX [Suspect]
     Dates: end: 20040818

REACTIONS (4)
  - GLOSSITIS [None]
  - MUCOSAL INFLAMMATION [None]
  - SKIN DESQUAMATION [None]
  - SKIN ULCER [None]
